FAERS Safety Report 26126630 (Version 1)
Quarter: 2025Q4

REPORT INFORMATION
  Report Type: Other
  Country: US (occurrence: US)
  Receive Date: 20251205
  Receipt Date: 20251205
  Transmission Date: 20260117
  Serious: Yes (Other)
  Sender: MADRIGAL PHARMACEUTICALS
  Company Number: US-MADRIGAL PHARMACEUTICALS, INC-2025USREZ15337

PATIENT

DRUGS (24)
  1. REZDIFFRA [Suspect]
     Active Substance: RESMETIROM
     Indication: Metabolic dysfunction-associated steatohepatitis
     Dosage: 80 MILLIGRAM, QD
     Route: 048
     Dates: start: 202511
  2. HUMALOG [Concomitant]
     Active Substance: INSULIN LISPRO
     Dosage: 100/ML CARTRIDGE
  3. PROTONIX [Concomitant]
     Active Substance: PANTOPRAZOLE SODIUM
     Dosage: 20 MILLIGRAM
  4. CREON [Concomitant]
     Active Substance: PANCRELIPASE AMYLASE\PANCRELIPASE LIPASE\PANCRELIPASE PROTEASE
     Dosage: 6K-19K-30K
  5. VOLTAREN ARTHRITIS PAIN [Concomitant]
     Active Substance: DICLOFENAC SODIUM
  6. LIPITOR [Concomitant]
     Active Substance: ATORVASTATIN CALCIUM
     Dosage: 20 MILLIGRAM
  7. TRAMADOL HCL [Concomitant]
     Active Substance: TRAMADOL HYDROCHLORIDE
     Dosage: 50 MILLIGRAM
  8. METOPROLOL TARTRATE [Concomitant]
     Active Substance: METOPROLOL TARTRATE
     Dosage: 25 MILLIGRAM
  9. BREYNA [Concomitant]
     Active Substance: BUDESONIDE\FORMOTEROL FUMARATE
     Dosage: 160-4.5 MCG HFA AEROSOL AD
  10. LEXAPRO [Concomitant]
     Active Substance: ESCITALOPRAM OXALATE
     Dosage: 20 MILLIGRAM
  11. AMILORIDE HCL [Concomitant]
     Active Substance: AMILORIDE HYDROCHLORIDE
     Dosage: 5 MILLIGRAM
  12. TACROLIMUS [Concomitant]
     Active Substance: TACROLIMUS
     Dosage: 1 MILLIGRAM
  13. TACROLIMUS [Concomitant]
     Active Substance: TACROLIMUS
     Dosage: 0.5 MILLIGRAM
  14. AMLODIPINE BESYLATE [Concomitant]
     Active Substance: AMLODIPINE BESYLATE
     Dosage: 2.5 MILLIGRAM
  15. CHONDROITIN SULFATE (BOVINE)\GLUCOSAMINE HYDROCHLORIDE [Concomitant]
     Active Substance: CHONDROITIN SULFATE (BOVINE)\GLUCOSAMINE HYDROCHLORIDE
  16. PRED FORTE [Concomitant]
     Active Substance: PREDNISOLONE ACETATE
     Dosage: DROPS SUSPENSION
  17. FENOFIBRATE [Concomitant]
     Active Substance: FENOFIBRATE
     Dosage: 54 MILLIGRAM
  18. SALONPAS PAIN RELIEF [Concomitant]
     Active Substance: MENTHOL\METHYL SALICYLATE
     Dosage: 0.025-1.25 ADHESIVE PATCH
  19. AZELASTINE HYDROCHLORIDE [Concomitant]
     Active Substance: AZELASTINE HYDROCHLORIDE
     Dosage: 137 MICROGRAM SPRAY/PUMP
  20. SEMGLEE (INSULIN GLARGINE-YFGN) [Concomitant]
     Active Substance: INSULIN GLARGINE-YFGN
     Dosage: (YFGN) 100/ML VIAL
  21. CARAFATE [Concomitant]
     Active Substance: SUCRALFATE
     Dosage: 1 GRAM
  22. LIDOCAINE [Concomitant]
     Active Substance: LIDOCAINE
     Dosage: CREAM (G)
  23. METHOCARBAMOL [Concomitant]
     Active Substance: METHOCARBAMOL
     Dosage: 500 MILLIGRAM
  24. TACROLIMUS [Concomitant]
     Active Substance: TACROLIMUS
     Dosage: 0.5 MILLIGRAM

REACTIONS (4)
  - Complications of transplanted liver [Unknown]
  - Unevaluable event [Unknown]
  - Pruritus [Unknown]
  - Stenosis [Unknown]

NARRATIVE: CASE EVENT DATE: 20251101
